FAERS Safety Report 19094697 (Version 2)
Quarter: 2021Q2

REPORT INFORMATION
  Report Type: Spontaneous
  Country: NO (occurrence: NO)
  Receive Date: 20210405
  Receipt Date: 20210416
  Transmission Date: 20210717
  Serious: Yes (Hospitalization)
  Sender: FDA-Public Use
  Company Number: NO-EMD SERONO-E2B_90082997

PATIENT
  Age: 45 Year
  Sex: Female

DRUGS (4)
  1. LOSARTAN MEDICAL VALLEY [Concomitant]
     Indication: HYPERTENSION
     Route: 048
     Dates: start: 2018
  2. MAVENCLAD [Suspect]
     Active Substance: CLADRIBINE
     Indication: MULTIPLE SCLEROSIS
     Route: 048
     Dates: start: 20190920, end: 20190925
  3. LERKANIDIPIN ACTAVIS [Concomitant]
     Indication: HYPERTENSION
     Route: 048
     Dates: start: 2018
  4. ASTRAZENECA COVID?19 VACCINE [Suspect]
     Active Substance: AZD-1222
     Indication: COVID-19 IMMUNISATION
     Dosage: DOSE NO. IN SERIES: 1 AND  VACCINATION SITE: LEFT ARM, TIME OF VACCINATION: 11:00
     Route: 030
     Dates: start: 20210301

REACTIONS (3)
  - Guillain-Barre syndrome [Not Recovered/Not Resolved]
  - Facial paralysis [Not Recovered/Not Resolved]
  - Radiculopathy [Not Recovered/Not Resolved]

NARRATIVE: CASE EVENT DATE: 20210316
